FAERS Safety Report 5164310-5 (Version None)
Quarter: 2006Q4

REPORT INFORMATION
  Report Type: 
  Country: None (occurrence: None)
  Receive Date: 20061129
  Receipt Date: 20061129
  Transmission Date: 20070319
  Serious: Yes (Hospitalization, Other)
  Sender: FDA-Public Use
  Company Number: None

PATIENT
  Sex: Male
  Weight: 61.2356 kg

DRUGS (1)
  1. MINOCYCLINE HCL [Suspect]
     Indication: ACNE
     Dosage: 2 TIMES PER DAY PO
     Route: 048
     Dates: start: 20040201, end: 20040801

REACTIONS (2)
  - COLITIS ULCERATIVE [None]
  - WEIGHT DECREASED [None]
